FAERS Safety Report 7765808-3 (Version None)
Quarter: 2011Q3

REPORT INFORMATION
  Report Type: 
  Country: None (occurrence: None)
  Receive Date: 20110921
  Receipt Date: 20110823
  Transmission Date: 20111222
  Serious: Yes (Other)
  Sender: FDA-Public Use
  Company Number: US-BAYER-2011-077423

PATIENT
  Age: 55 Year
  Sex: Female
  Weight: 102.4 kg

DRUGS (5)
  1. ALEVE (CAPLET) [Suspect]
     Dosage: 220 MG, ONCE
     Route: 048
     Dates: start: 20110517, end: 20110517
  2. ALEVE (CAPLET) [Suspect]
     Indication: ARTHRITIS
     Dosage: 220 MG, ONCE, BOTTLE COUNT 24S
     Route: 048
     Dates: start: 20110513, end: 20110513
  3. METFORMIN HCL [Concomitant]
  4. LISINOPRIL [Concomitant]
  5. SIMVASTATIN [Concomitant]

REACTIONS (8)
  - HYPERSENSITIVITY [None]
  - RASH [None]
  - LOSS OF CONSCIOUSNESS [None]
  - MOTOR DYSFUNCTION [None]
  - SOMNOLENCE [None]
  - DYSPNOEA [None]
  - LIP SWELLING [None]
  - ASTHENIA [None]
